FAERS Safety Report 4805217-X (Version None)
Quarter: 2005Q4

REPORT INFORMATION
  Report Type: 
  Country: None (occurrence: None)
  Receive Date: 20051018
  Receipt Date: 20051004
  Transmission Date: 20060501
  Serious: Yes (Death, Hospitalization)
  Sender: FDA-Public Use
  Company Number: 02100-JPN-05-0488

PATIENT
  Age: 82 Year
  Sex: Male

DRUGS (7)
  1. CILOSTAZOL [Suspect]
     Indication: CEREBRAL INFARCTION
     Dosage: 200 MG
     Route: 048
     Dates: start: 20050816, end: 20050822
  2. EDARAVONE [Concomitant]
  3. CARBAMAZEPINE [Concomitant]
  4. NITRAZEPAM [Concomitant]
  5. TIAPRIDE HYDROCHLORIDE [Concomitant]
  6. CETIRIZINE HYDROCHLORIDE [Concomitant]
  7. PHENYTOIN [Concomitant]

REACTIONS (8)
  - BRAIN OEDEMA [None]
  - CEREBRAL HAEMORRHAGE [None]
  - CONVULSION [None]
  - HAEMORRHAGIC INFARCTION [None]
  - PNEUMONIA [None]
  - PYREXIA [None]
  - RESPIRATORY DISORDER [None]
  - RESTLESSNESS [None]
